FAERS Safety Report 4372027-X (Version None)
Quarter: 2004Q2

REPORT INFORMATION
  Report Type: 
  Country: None (occurrence: None)
  Receive Date: 20040602
  Receipt Date: 20040517
  Transmission Date: 20050107
  Serious: No
  Sender: FDA-Public Use
  Company Number: BRO-007194

PATIENT
  Age: 61 Year
  Sex: Male

DRUGS (10)
  1. IOPAMIDOL-370 [Suspect]
     Indication: ANGINA PECTORIS
     Dosage: SEE IMAGE
     Route: 022
     Dates: start: 20040206, end: 20040206
  2. IOPAMIDOL-370 [Suspect]
     Indication: ARTERIOGRAM CORONARY
     Dosage: SEE IMAGE
     Route: 022
     Dates: start: 20040206, end: 20040206
  3. IOPAMIDOL-370 [Suspect]
     Indication: CORONARY ANGIOPLASTY
     Dosage: SEE IMAGE
     Route: 022
     Dates: start: 20040206, end: 20040206
  4. IOPAMIDOL-370 [Suspect]
     Indication: ANGINA PECTORIS
     Dosage: SEE IMAGE
     Route: 022
     Dates: start: 20040209, end: 20040209
  5. IOPAMIDOL-370 [Suspect]
     Indication: ARTERIOGRAM CORONARY
     Dosage: SEE IMAGE
     Route: 022
     Dates: start: 20040209, end: 20040209
  6. IOPAMIDOL-370 [Suspect]
     Indication: CORONARY ANGIOPLASTY
     Dosage: SEE IMAGE
     Route: 022
     Dates: start: 20040209, end: 20040209
  7. ASPIRIN [Concomitant]
  8. TICLOPIDINE HCL [Concomitant]
  9. PRAVASTATIN [Concomitant]
  10. BANAN [Concomitant]

REACTIONS (11)
  - ANOREXIA [None]
  - CARDIAC PROCEDURE COMPLICATION [None]
  - COMA [None]
  - CONTRAST MEDIA REACTION [None]
  - HEADACHE [None]
  - INAPPROPRIATE ANTIDIURETIC HORMONE SECRETION [None]
  - NAUSEA [None]
  - POST PROCEDURAL COMPLICATION [None]
  - PYREXIA [None]
  - RENAL TUBULAR DISORDER [None]
  - VOMITING [None]
